FAERS Safety Report 9706816 (Version 1)
Quarter: 2013Q4

REPORT INFORMATION
  Report Type: Report from Study
  Country: AR (occurrence: AR)
  Receive Date: 20131125
  Receipt Date: 20131125
  Transmission Date: 20140711
  Serious: Yes (Other)
  Sender: FDA-Public Use
  Company Number: PHHY2013AR134755

PATIENT
  Sex: Female

DRUGS (2)
  1. EXELON PATCH [Suspect]
     Dosage: UNK
     Route: 062
     Dates: start: 2013
  2. DIOVAN D [Suspect]
     Dosage: 160 MG, UNK
     Route: 048

REACTIONS (1)
  - General physical health deterioration [Unknown]
